FAERS Safety Report 8333505-1 (Version None)
Quarter: 2012Q2

REPORT INFORMATION
  Report Type: 
  Country: None (occurrence: None)
  Receive Date: 20120503
  Receipt Date: 20101105
  Transmission Date: 20120825
  Serious: No
  Sender: FDA-Public Use
  Company Number: US-TEVA-2010005815

PATIENT
  Sex: Male
  Weight: 72.186 kg

DRUGS (4)
  1. XANAX [Concomitant]
  2. NUVIGIL [Suspect]
     Indication: SLEEP APNOEA SYNDROME
     Dosage: 150 MILLIGRAM;
     Route: 048
     Dates: start: 20101029
  3. ZOLOFT [Concomitant]
  4. AMBIEN [Concomitant]

REACTIONS (2)
  - NERVOUSNESS [None]
  - TREMOR [None]
